FAERS Safety Report 15680034 (Version 1)
Quarter: 2018Q4

REPORT INFORMATION
  Report Type: Spontaneous
  Country: JP (occurrence: JP)
  Receive Date: 20181203
  Receipt Date: 20181203
  Transmission Date: 20190205
  Serious: Yes (Other)
  Sender: FDA-Public Use
  Company Number: JP-SUN PHARMACEUTICAL INDUSTRIES LTD-2018R1-192426

PATIENT
  Age: 41 Year
  Sex: Female

DRUGS (4)
  1. TANDOSPIRONE [Concomitant]
     Active Substance: TANDOSPIRONE
     Indication: PRODUCT USED FOR UNKNOWN INDICATION
     Dosage: UNK
     Route: 065
  2. TEGRETOL [Suspect]
     Active Substance: CARBAMAZEPINE
     Indication: MUSCLE SPASMS
     Dosage: 400 MILLIGRAM, DAILY
     Route: 048
  3. LIORESAL [Suspect]
     Active Substance: BACLOFEN
     Indication: SPINOCEREBELLAR ATAXIA
     Dosage: UNK
     Route: 048
  4. LORAZEPAM. [Concomitant]
     Active Substance: LORAZEPAM
     Indication: PRODUCT USED FOR UNKNOWN INDICATION
     Dosage: UNK
     Route: 065

REACTIONS (4)
  - Somnolence [Recovering/Resolving]
  - Myositis [Unknown]
  - Inappropriate antidiuretic hormone secretion [Unknown]
  - Muscle spasms [Recovered/Resolved]
